FAERS Safety Report 17607986 (Version 2)
Quarter: 2020Q2

REPORT INFORMATION
  Report Type: Report from Study
  Country: BR (occurrence: BR)
  Receive Date: 20200331
  Receipt Date: 20200525
  Transmission Date: 20200713
  Serious: Yes (Death, Disabling)
  Sender: FDA-Public Use
  Company Number: NVSC2020BR086816

PATIENT
  Age: 82 Year
  Sex: Male

DRUGS (2)
  1. VOTRIENT [Suspect]
     Active Substance: PAZOPANIB HYDROCHLORIDE
     Indication: METASTATIC RENAL CELL CARCINOMA
     Dosage: 2 DF, QD
     Route: 065
     Dates: start: 20200129, end: 202002
  2. VOTRIENT [Suspect]
     Active Substance: PAZOPANIB HYDROCHLORIDE
     Dosage: 2 DF, QD
     Route: 065
     Dates: start: 20200414, end: 20200416

REACTIONS (14)
  - Lung neoplasm malignant [Fatal]
  - Vomiting [Recovered/Resolved]
  - Multiple organ dysfunction syndrome [Fatal]
  - Renal cancer [Fatal]
  - Asthenia [Recovered/Resolved]
  - Hepatic cancer [Fatal]
  - Gait inability [Recovered/Resolved]
  - Vomiting [Not Recovered/Not Resolved]
  - Aphonia [Recovered/Resolved]
  - Second primary malignancy [Fatal]
  - Malaise [Recovered/Resolved]
  - Aphonia [Not Recovered/Not Resolved]
  - Gait inability [Not Recovered/Not Resolved]
  - Asthenia [Not Recovered/Not Resolved]

NARRATIVE: CASE EVENT DATE: 202001
